FAERS Safety Report 7419184-6 (Version None)
Quarter: 2011Q2

REPORT INFORMATION
  Report Type: 
  Country: None (occurrence: None)
  Receive Date: 20110415
  Receipt Date: 20110217
  Transmission Date: 20111010
  Serious: No
  Sender: FDA-Public Use
  Company Number: US-B.I. PHARMACEUTICALS,INC./RIDGEFIELD-2011-BP-05806BP

PATIENT
  Sex: Female

DRUGS (4)
  1. NORMODYNE [Concomitant]
     Indication: HYPERTENSION
  2. PRADAXA [Suspect]
     Indication: ATRIAL FIBRILLATION
     Dosage: 300 MG
     Route: 048
     Dates: start: 20110211, end: 20110215
  3. DIOVAN [Concomitant]
     Indication: HYPERTENSION
  4. DILTIAZEM [Concomitant]
     Indication: HYPERTENSION

REACTIONS (3)
  - DIARRHOEA [None]
  - ABDOMINAL PAIN UPPER [None]
  - INTERNATIONAL NORMALISED RATIO [None]
